FAERS Safety Report 20054351 (Version 1)
Quarter: 2021Q4

REPORT INFORMATION
  Report Type: Spontaneous
  Country: CN (occurrence: None)
  Receive Date: 20211110
  Receipt Date: 20211110
  Transmission Date: 20220303
  Serious: Yes (Other)
  Sender: FDA-Public Use
  Company Number: CN-Eisai Medical Research-EC-2021-102716

PATIENT
  Age: 45 Year
  Sex: Male
  Weight: 85 kg

DRUGS (6)
  1. LENVIMA [Suspect]
     Active Substance: LENVATINIB
     Indication: Hepatic cancer
     Route: 048
     Dates: start: 20201201, end: 20210602
  2. LENVIMA [Suspect]
     Active Substance: LENVATINIB
     Route: 048
     Dates: start: 20210624, end: 20210624
  3. CAMRELIZUMAB [Suspect]
     Active Substance: CAMRELIZUMAB
     Indication: Hepatic cancer
     Dosage: 200 MG, FREQUENCY UNKNOWN
     Route: 041
     Dates: start: 202105, end: 20210602
  4. SINTILIMAB [Concomitant]
     Active Substance: SINTILIMAB
     Indication: Hepatic cancer
     Dosage: 200 MG, FREQUENCY UNKNOWN
     Route: 041
     Dates: start: 202008, end: 202008
  5. SINTILIMAB [Concomitant]
     Active Substance: SINTILIMAB
     Dosage: 200 MG, FREQUENCY UNKNOWN
     Route: 041
     Dates: start: 202009, end: 202009
  6. SINTILIMAB [Concomitant]
     Active Substance: SINTILIMAB
     Dosage: 200 MG, FREQUENCY UNKNOWN
     Route: 041
     Dates: start: 202105, end: 202105

REACTIONS (1)
  - Immune-mediated myocarditis [Recovering/Resolving]

NARRATIVE: CASE EVENT DATE: 20210602
